FAERS Safety Report 19036998 (Version 1)
Quarter: 2021Q1

REPORT INFORMATION
  Report Type: Spontaneous
  Country: US (occurrence: US)
  Receive Date: 20210322
  Receipt Date: 20210322
  Transmission Date: 20210420
  Serious: Yes (Death)
  Sender: FDA-Public Use
  Company Number: None

PATIENT
  Age: 50 Year
  Sex: Male
  Weight: 111.15 kg

DRUGS (15)
  1. ONDANSETRON HCL [Concomitant]
     Active Substance: ONDANSETRON HYDROCHLORIDE
  2. PREDNISOLONE ACETATE. [Concomitant]
     Active Substance: PREDNISOLONE ACETATE
  3. HYDROCORTISONE. [Concomitant]
     Active Substance: HYDROCORTISONE
  4. LISINOPRIL. [Concomitant]
     Active Substance: LISINOPRIL
  5. LEVETIRACETAM. [Concomitant]
     Active Substance: LEVETIRACETAM
  6. MEKTOVI [Suspect]
     Active Substance: BINIMETINIB
     Indication: MALIGNANT LYMPHOID NEOPLASM
     Route: 048
     Dates: start: 20200616, end: 20210316
  7. MIRTAZAPINE. [Concomitant]
     Active Substance: MIRTAZAPINE
  8. PROCHLORPERAZINE MALEATE. [Concomitant]
     Active Substance: PROCHLORPERAZINE MALEATE
  9. METFORMIN HCL [Concomitant]
     Active Substance: METFORMIN HYDROCHLORIDE
  10. INSULIN LISPRO (1 UNIT DIAL) [Concomitant]
  11. ALBUTEROL SULFATE HFA [Concomitant]
     Active Substance: ALBUTEROL SULFATE
  12. BRAFTOVI [Suspect]
     Active Substance: ENCORAFENIB
     Indication: MALIGNANT LYMPHOID NEOPLASM
     Route: 048
     Dates: start: 20200616, end: 20210316
  13. KETOCONAZOLE. [Concomitant]
     Active Substance: KETOCONAZOLE
  14. ROSUVASTATIN CALCIUM. [Concomitant]
     Active Substance: ROSUVASTATIN CALCIUM
  15. CLINDAMYCIN HCL [Concomitant]
     Active Substance: CLINDAMYCIN HYDROCHLORIDE

REACTIONS (1)
  - Death [None]

NARRATIVE: CASE EVENT DATE: 20210316
